FAERS Safety Report 11090942 (Version 6)
Quarter: 2015Q3

REPORT INFORMATION
  Report Type: Report from Study
  Country: DE (occurrence: DE)
  Receive Date: 20150505
  Receipt Date: 20150713
  Transmission Date: 20151125
  Serious: Yes (Death, Life-Threatening, Hospitalization, Other)
  Sender: FDA-Public Use
  Company Number: DE-PFIZER INC-2015150324

PATIENT
  Age: 66 Year
  Sex: Male
  Weight: 78 kg

DRUGS (6)
  1. RITUXIMAB [Suspect]
     Active Substance: RITUXIMAB
     Dosage: 750 MG, UNK
     Dates: start: 20150207, end: 20150415
  2. CISPLATIN. [Suspect]
     Active Substance: CISPLATIN
     Dosage: 200 MG, UNK
     Dates: start: 20150208, end: 20150416
  3. CYTARABINE. [Suspect]
     Active Substance: CYTARABINE
     Dosage: 8000 MG, UNK
     Dates: start: 20150209, end: 20150417
  4. NEULASTA [Concomitant]
     Active Substance: PEGFILGRASTIM
     Dosage: AFTER EACH CYCLE
  5. TEMSIROLIMUS [Suspect]
     Active Substance: TEMSIROLIMUS
     Dosage: 25 MG, CYCLE 3
     Dates: start: 20150206, end: 20150421
  6. DEXAMETHASONE. [Suspect]
     Active Substance: DEXAMETHASONE
     Dosage: 40 MG, UNK
     Dates: start: 20150209, end: 20150419

REACTIONS (2)
  - Thrombocytopenia [Not Recovered/Not Resolved]
  - Neutropenic sepsis [Fatal]

NARRATIVE: CASE EVENT DATE: 20150424
